FAERS Safety Report 24573423 (Version 1)
Quarter: 2024Q4

REPORT INFORMATION
  Report Type: Spontaneous
  Country: FR (occurrence: FR)
  Receive Date: 20241102
  Receipt Date: 20241102
  Transmission Date: 20250114
  Serious: Yes (Other)
  Sender: TEVA
  Company Number: None

PATIENT
  Age: 84 Year
  Sex: Female
  Weight: 79 kg

DRUGS (2)
  1. MIRTAZAPINE [Suspect]
     Active Substance: MIRTAZAPINE
     Indication: Depression
     Route: 048
     Dates: start: 20240912
  2. MELATONIN [Suspect]
     Active Substance: MELATONIN
     Indication: Sleep disorder
     Route: 048
     Dates: start: 20240912

REACTIONS (1)
  - Cholestasis [Not Recovered/Not Resolved]

NARRATIVE: CASE EVENT DATE: 20240920
